FAERS Safety Report 10914453 (Version 1)
Quarter: 2015Q1

REPORT INFORMATION
  Report Type: Spontaneous
  Country: US (occurrence: US)
  Receive Date: 20150313
  Receipt Date: 20150313
  Transmission Date: 20150721
  Serious: No
  Sender: FDA-Public Use
  Company Number: US-ASTRAZENECA-2008BM04623

PATIENT
  Age: 29315 Day
  Sex: Female
  Weight: 82.5 kg

DRUGS (4)
  1. BYETTA [Suspect]
     Active Substance: EXENATIDE
     Route: 058
     Dates: start: 20080320
  2. TYLENOL PM [Concomitant]
     Active Substance: ACETAMINOPHEN\DIPHENHYDRAMINE
     Indication: INSOMNIA
     Dosage: UNK
  3. BYETTA [Suspect]
     Active Substance: EXENATIDE
     Dosage: EXENATIDE, 10 UG
     Route: 058
  4. BYETTA [Suspect]
     Active Substance: EXENATIDE
     Route: 058
     Dates: start: 200606, end: 20080319

REACTIONS (5)
  - Blood glucose decreased [Not Recovered/Not Resolved]
  - Insomnia [Not Recovered/Not Resolved]
  - Intentional product misuse [Unknown]
  - Nightmare [Not Recovered/Not Resolved]
  - Blood glucose increased [Unknown]

NARRATIVE: CASE EVENT DATE: 20080324
